FAERS Safety Report 6255533-2 (Version None)
Quarter: 2009Q3

REPORT INFORMATION
  Report Type: 
  Country: None (occurrence: None)
  Receive Date: 20090702
  Receipt Date: 20090622
  Transmission Date: 20100115
  Serious: Yes (Other)
  Sender: FDA-Public Use
  Company Number: US-BAXTER-2009BH010630

PATIENT

DRUGS (1)
  1. DOPAMINE HCL IN 5% DEXTROSE [Suspect]
     Indication: DRUG USE FOR UNKNOWN INDICATION
     Route: 042

REACTIONS (3)
  - BLOOD PRESSURE SYSTOLIC DECREASED [None]
  - DEVICE MALFUNCTION [None]
  - DRUG DISPENSING ERROR [None]
